FAERS Safety Report 6554900-7 (Version None)
Quarter: 2010Q1

REPORT INFORMATION
  Report Type: 
  Country: None (occurrence: None)
  Receive Date: 20100125
  Receipt Date: 20100112
  Transmission Date: 20100710
  Serious: Yes (Other)
  Sender: FDA-Public Use
  Company Number: 430006J10USA

PATIENT
  Age: 29 Year
  Sex: Female

DRUGS (2)
  1. NOVANTRONE [Suspect]
     Indication: MULTIPLE SCLEROSIS
     Dates: start: 20060101, end: 20060101
  2. NOVANTRONE [Suspect]
     Indication: MULTIPLE SCLEROSIS
     Dates: start: 20060101

REACTIONS (3)
  - DYSPNOEA [None]
  - EJECTION FRACTION DECREASED [None]
  - FATIGUE [None]
